FAERS Safety Report 21339124 (Version 1)
Quarter: 2022Q3

REPORT INFORMATION
  Report Type: Spontaneous
  Country: AT (occurrence: AT)
  Receive Date: 20220915
  Receipt Date: 20220915
  Transmission Date: 20221027
  Serious: Yes (Death, Life-Threatening, Hospitalization)
  Sender: FDA-Public Use
  Company Number: None

PATIENT
  Age: 56 Year
  Sex: Male

DRUGS (12)
  1. CIPROFLOXACIN [Suspect]
     Active Substance: CIPROFLOXACIN
     Indication: Erysipelas
     Dates: start: 20220701, end: 20220711
  2. STREPTOVARYCIN [Suspect]
     Active Substance: STREPTOVARYCIN
     Indication: Erysipelas
     Dosage: 1 DF, TID
     Dates: start: 20220625, end: 202207
  3. CEPHALEXIN [Suspect]
     Active Substance: CEPHALEXIN
     Indication: Erysipelas
     Dates: end: 20220624
  4. AUGMENTIN [Suspect]
     Active Substance: AMOXICILLIN\CLAVULANATE POTASSIUM
     Indication: Erysipelas
     Dosage: UNKNOWN
     Dates: start: 202206
  5. ASPIRIN [Concomitant]
     Active Substance: ASPIRIN
  6. Aspirin + C - Brausetabletten [Concomitant]
  7. NOVALGIN (METAMIZOLE SODIUM) [Concomitant]
     Active Substance: METAMIZOLE SODIUM
  8. TRAMADOL [Concomitant]
     Active Substance: TRAMADOL
  9. FUROSEMIDE [Concomitant]
     Active Substance: FUROSEMIDE
  10. LANTUS [Concomitant]
     Active Substance: INSULIN GLARGINE
  11. HUMALOG [Concomitant]
     Active Substance: INSULIN LISPRO
  12. VITAMIN B [Concomitant]
     Active Substance: VITAMIN B

REACTIONS (7)
  - Drug-induced liver injury [Fatal]
  - Acute hepatic failure [Fatal]
  - Hepatic encephalopathy [Fatal]
  - Acute kidney injury [Not Recovered/Not Resolved]
  - Hepatorenal syndrome [Not Recovered/Not Resolved]
  - Primary biliary cholangitis [Not Recovered/Not Resolved]
  - Liver disorder [Not Recovered/Not Resolved]

NARRATIVE: CASE EVENT DATE: 20220701
